FAERS Safety Report 5715376-2 (Version None)
Quarter: 2008Q2

REPORT INFORMATION
  Report Type: 
  Country: None (occurrence: None)
  Receive Date: 20080422
  Receipt Date: 20080401
  Transmission Date: 20081010
  Serious: Yes (Other)
  Sender: FDA-Public Use
  Company Number: 20085028

PATIENT
  Age: 44 Year
  Sex: Female

DRUGS (3)
  1. LIORESAL [Suspect]
     Indication: MUSCLE SPASTICITY
     Dosage: UNK MCG, DAILY, INTRATHECAL
     Route: 037
  2. ORAL FLUDROCORTISONE [Concomitant]
  3. TOPIRAMATE [Concomitant]

REACTIONS (3)
  - FATIGUE [None]
  - GLOBAL AMNESIA [None]
  - HYPOTENSION [None]
